FAERS Safety Report 5593114-4 (Version None)
Quarter: 2008Q1

REPORT INFORMATION
  Report Type: 
  Country: None (occurrence: None)
  Receive Date: 20080114
  Receipt Date: 20080114
  Transmission Date: 20080703
  Serious: No
  Sender: FDA-Public Use
  Company Number: None

PATIENT
  Age: 61 Year
  Sex: Male
  Weight: 94.3482 kg

DRUGS (2)
  1. RITUXIMAB [Suspect]
     Indication: LEUKAEMIA
     Dosage: 800MG  ONCE  IV
     Route: 042
     Dates: start: 20071022, end: 20071022
  2. FLUDARABINE PHOSPHATE [Suspect]
     Indication: LEUKAEMIA
     Dosage: 50MG  OTHER  IV
     Route: 042
     Dates: start: 20071022

REACTIONS (5)
  - DYSPNOEA [None]
  - FLUSHING [None]
  - PRURITUS [None]
  - RASH [None]
  - URTICARIA [None]
